FAERS Safety Report 8991927 (Version 1)
Quarter: 2012Q4

REPORT INFORMATION
  Report Type: 
  Country: CO (occurrence: CO)
  Receive Date: 20121231
  Receipt Date: 20121231
  Transmission Date: 20130627
  Serious: Yes (Disabling, Other)
  Sender: FDA-Public Use
  Company Number: CO-UCBSA-073594

PATIENT
  Age: 42 Year
  Sex: Female

DRUGS (5)
  1. CIMZIA [Suspect]
     Indication: RHEUMATOID ARTHRITIS
     Dosage: DAILY DOSE: 400 MG WEEKS 0-2-4
     Route: 058
     Dates: start: 20120704
  2. LEFLUONOMIDA [Concomitant]
     Dosage: UNKNOWN DOSE
  3. DEFLAXACORT [Concomitant]
     Dosage: UNKNOWN DOSE
  4. GABAPECTIN [Concomitant]
     Dosage: UNKNOWN DOSE
  5. AMITRIPTILINA [Concomitant]
     Dosage: UNKNOWN DOSE

REACTIONS (2)
  - Deafness [Unknown]
  - Otitis media acute [Unknown]
